FAERS Safety Report 6631328-2 (Version None)
Quarter: 2010Q1

REPORT INFORMATION
  Report Type: 
  Country: None (occurrence: None)
  Receive Date: 20100311
  Receipt Date: 20100311
  Transmission Date: 20100710
  Serious: Yes (Hospitalization)
  Sender: FDA-Public Use
  Company Number: None

PATIENT
  Sex: Female
  Weight: 137 kg

DRUGS (2)
  1. CISPLATIN [Suspect]
     Dosage: 150 MG
  2. TAXOL [Suspect]
     Dosage: 270 MG

REACTIONS (23)
  - ABDOMINAL DISTENSION [None]
  - ABDOMINAL PAIN LOWER [None]
  - ASTHENIA [None]
  - CHEST PAIN [None]
  - CHILLS [None]
  - CONSTIPATION [None]
  - DECREASED APPETITE [None]
  - DRUG TOXICITY [None]
  - EFFUSION [None]
  - FLATULENCE [None]
  - HYPERHIDROSIS [None]
  - HYPOPHAGIA [None]
  - INFUSION SITE ABSCESS [None]
  - INFUSION SITE INFECTION [None]
  - INFUSION SITE PAIN [None]
  - MALAISE [None]
  - NAUSEA [None]
  - NO THERAPEUTIC RESPONSE [None]
  - PAIN [None]
  - PALPITATIONS [None]
  - PELVIC PAIN [None]
  - VOMITING [None]
  - WEIGHT DECREASED [None]
